FAERS Safety Report 14997276 (Version 1)
Quarter: 2018Q2

REPORT INFORMATION
  Report Type: Spontaneous
  Country: GB (occurrence: GB)
  Receive Date: 20180611
  Receipt Date: 20180611
  Transmission Date: 20180711
  Serious: Yes (Other)
  Sender: FDA-Public Use
  Company Number: GB-MYLANLABS-2018M1037764

PATIENT
  Sex: Female

DRUGS (1)
  1. BISOPROLOL [Suspect]
     Active Substance: BISOPROLOL
     Indication: EXTRASYSTOLES
     Dosage: 1.25 MG, UNK
     Route: 065

REACTIONS (8)
  - Syncope [Unknown]
  - Palpitations [Unknown]
  - Lethargy [Unknown]
  - Malaise [Unknown]
  - Feeling abnormal [Unknown]
  - Choking [Unknown]
  - Dizziness [Unknown]
  - Asthenia [Unknown]
